FAERS Safety Report 9422734 (Version 1)
Quarter: 2013Q3

REPORT INFORMATION
  Report Type: Spontaneous
  Country: US (occurrence: US)
  Receive Date: 20130726
  Receipt Date: 20130726
  Transmission Date: 20140515
  Serious: Yes (Hospitalization)
  Sender: FDA-Public Use
  Company Number: US-BAYER-2013-088218

PATIENT
  Age: 20 Year
  Sex: Female

DRUGS (16)
  1. YASMIN [Suspect]
  2. ADVIL [Concomitant]
     Dosage: UNK
     Dates: start: 20060125
  3. DEMEROL [Concomitant]
     Dosage: 25 MG, UNK
     Route: 042
     Dates: start: 20060126
  4. DECADRON [Concomitant]
     Dosage: 4 MG, UNK
     Route: 042
     Dates: start: 20060126
  5. PROTONIX [Concomitant]
     Dosage: 40 MG, UNK
     Dates: start: 20060126
  6. RESTORIL [Concomitant]
     Dosage: 60 MG, Q HS (AT BEDTIME)
     Dates: start: 20060126
  7. SKELAXIN [Concomitant]
     Dosage: 400 MG, BID
     Dates: start: 20060126
  8. ULTRAM [Concomitant]
     Indication: PAIN
     Dosage: 50-100 MG, QID
     Dates: start: 20060127
  9. MEDROL [Concomitant]
     Dosage: UNK
     Dates: start: 20060127
  10. FLEXERIL [Concomitant]
     Dosage: 10 MG, TID
     Dates: start: 20060127
  11. DILAUDID [Concomitant]
  12. PEPCID [Concomitant]
     Dosage: 40 MG, DAILY
     Dates: start: 20060127
  13. OSCAL [Concomitant]
     Dosage: 500 MG, BID
     Dates: start: 20060127
  14. OCEAN [Concomitant]
     Dosage: UNK UNK, BID
     Route: 045
     Dates: start: 20060127
  15. FLONASE [Concomitant]
     Dosage: 1 PUFF(S), BID
     Dates: start: 20060127
  16. LEVAQUIN [Concomitant]
     Dosage: 500 MG, DAILY
     Dates: start: 20060127

REACTIONS (4)
  - Deep vein thrombosis [None]
  - Pelvic venous thrombosis [Recovered/Resolved]
  - Vena cava thrombosis [Recovered/Resolved]
  - Ovarian vein thrombosis [Recovering/Resolving]
